FAERS Safety Report 18812104 (Version 1)
Quarter: 2021Q1

REPORT INFORMATION
  Report Type: Other
  Country: HU (occurrence: HU)
  Receive Date: 20210129
  Receipt Date: 20210129
  Transmission Date: 20210419
  Serious: Yes (Death, Other)
  Sender: FDA-Public Use
  Company Number: HU-VALIDUS PHARMACEUTICALS LLC-HU-2021VAL000060

PATIENT
  Age: 72 Year
  Sex: Male
  Weight: 81 kg

DRUGS (4)
  1. MORPHINE [Suspect]
     Active Substance: MORPHINE
     Indication: LEFT VENTRICULAR FAILURE
     Dosage: 10 MG, TOTAL
     Route: 058
     Dates: start: 20201218, end: 20201218
  2. FUROSEMIDE. [Suspect]
     Active Substance: FUROSEMIDE
     Indication: LEFT VENTRICULAR FAILURE
     Dosage: 20 MG, BID
     Route: 042
     Dates: start: 20201218, end: 20201218
  3. EXACYL [Suspect]
     Active Substance: TRANEXAMIC ACID
     Indication: LEFT VENTRICULAR FAILURE
     Dosage: 0.5 G, BID
     Route: 042
     Dates: start: 20201218, end: 20201218
  4. METHYLPREDNISOLONE SODIUM SUCCINATE. [Suspect]
     Active Substance: METHYLPREDNISOLONE SODIUM SUCCINATE
     Indication: LEFT VENTRICULAR FAILURE
     Dosage: 80 MG, TOTAL
     Route: 042
     Dates: start: 20201218, end: 20201218

REACTIONS (1)
  - Drug ineffective [Fatal]

NARRATIVE: CASE EVENT DATE: 20201218
